FAERS Safety Report 16224781 (Version 1)
Quarter: 2019Q2

REPORT INFORMATION
  Report Type: Spontaneous
  Country: FR (occurrence: FR)
  Receive Date: 20190422
  Receipt Date: 20190422
  Transmission Date: 20190711
  Serious: Yes (Hospitalization)
  Sender: FDA-Public Use
  Company Number: FR-PFIZER INC-FR-WYE-H07909409

PATIENT
  Age: 63 Year
  Sex: Male

DRUGS (2)
  1. MILDAC [Interacting]
     Active Substance: HYPERICUM PERFORATUM
     Indication: DEPRESSION
     Dosage: 300 MG, WEEKLY
     Route: 048
  2. INIPOMP [Suspect]
     Active Substance: PANTOPRAZOLE SODIUM
     Indication: GASTROOESOPHAGEAL REFLUX DISEASE
     Dosage: 40 MG, 1X/DAY
     Route: 048
     Dates: start: 20081001, end: 20081102

REACTIONS (8)
  - Liver injury [Recovered/Resolved]
  - Hepatitis acute [Recovered/Resolved]
  - Abdominal pain upper [Recovered/Resolved]
  - Pain [Unknown]
  - Diarrhoea [Recovered/Resolved]
  - Drug interaction [Recovered/Resolved]
  - Nausea [Unknown]
  - Biliary cyst [Unknown]

NARRATIVE: CASE EVENT DATE: 2008
